FAERS Safety Report 8534348-6 (Version None)
Quarter: 2012Q3

REPORT INFORMATION
  Report Type: 
  Country: None (occurrence: None)
  Receive Date: 20120724
  Receipt Date: 20120716
  Transmission Date: 20120928
  Serious: Yes (Other)
  Sender: FDA-Public Use
  Company Number: BR-ASTRAZENECA-2012SE49896

PATIENT
  Age: 68 Year
  Sex: Female
  Weight: 65 kg

DRUGS (9)
  1. NEXIUM [Suspect]
     Indication: OESOPHAGITIS
     Route: 048
     Dates: end: 20120601
  2. LONIUM [Concomitant]
  3. NEXIUM [Suspect]
     Route: 048
     Dates: start: 20120601
  4. CARVEDILOL [Concomitant]
  5. NEXIUM [Suspect]
     Indication: GASTRITIS PROPHYLAXIS
     Route: 048
     Dates: end: 20120601
  6. NEXIUM [Suspect]
     Indication: GASTRITIS
     Route: 048
     Dates: end: 20120601
  7. NEXIUM [Suspect]
     Route: 048
     Dates: start: 20120601
  8. NEXIUM [Suspect]
     Route: 048
     Dates: start: 20120601
  9. TRANQUINAL [Concomitant]
     Route: 048

REACTIONS (2)
  - LUNG NEOPLASM MALIGNANT [None]
  - OEDEMA PERIPHERAL [None]
